FAERS Safety Report 21654027 (Version 1)
Quarter: 2022Q4

REPORT INFORMATION
  Report Type: Spontaneous
  Country: CH (occurrence: CH)
  Receive Date: 20221129
  Receipt Date: 20221129
  Transmission Date: 20230113
  Serious: Yes (Hospitalization)
  Sender: FDA-Public Use
  Company Number: None

PATIENT
  Age: 27 Month
  Sex: Male

DRUGS (19)
  1. CELLCEPT [Suspect]
     Active Substance: MYCOPHENOLATE MOFETIL
     Indication: Immunosuppression
     Dosage: CELLCEPT (MYCOPHENOLATE) CUMULATIVELY 3 DOSAGE UNITS ENTERALLY VIA THE TUBE BETWEEN THE 27.0
     Route: 048
     Dates: start: 20220427, end: 20220428
  2. HEPARIN SODIUM [Suspect]
     Active Substance: HEPARIN SODIUM
     Indication: Product used for unknown indication
     Dosage: HEPARIN (NO DETAILS AVAILABLE) FROM 04/28/2022
     Route: 065
     Dates: start: 20220428
  3. CYCLOSPORINE [Suspect]
     Active Substance: CYCLOSPORINE
     Indication: Immunosuppression
     Dosage: SANDIMMUN NEORAL (CICLOSPORIN) CUMULATIVE 3 DOSAGE UNITS ENTERALLY VIA THE PROBE BETWEEN THE.
     Route: 048
     Dates: start: 20220427, end: 20220428
  4. SOLU-MEDROL [Suspect]
     Active Substance: METHYLPREDNISOLONE SODIUM SUCCINATE
     Indication: Immunosuppression
     Dosage: METHYLPREDNISOLONE INTRAVENOUSLY PROBABLY FROM 04/27/2022 TO 04/28/2022 (NO EXACT...
     Route: 042
     Dates: start: 20220427, end: 20220428
  5. METOPROLOL [Concomitant]
     Active Substance: METOPROLOL
     Dosage: METOPROLOL SUSPENSION 2 MG/ML ENTERAL UBER SONDE 2 MG 1-0-1
     Route: 048
  6. AMLODIPINE BESYLATE [Concomitant]
     Active Substance: AMLODIPINE BESYLATE
     Dosage: AMLODIPIN SUSP 1MG/ML ENTERAL UBER SONDE 2 MG 1-0-1
     Route: 048
  7. VALSARTAN [Concomitant]
     Active Substance: VALSARTAN
     Dosage: VALSARTAN 4MG/ML ENTERAL UBER SONDE 20 MG 1/TAG
     Route: 048
  8. VITAMIN D3 WILD OIL [Concomitant]
     Dosage: VITAMIN D3 WILD (CHOLECALCIFEROL (VITAMIN D3)) 2500 IE (5 TROPFEN) IN MUND
     Route: 048
  9. ALFACALCIDOL [Concomitant]
     Active Substance: ALFACALCIDOL
     Dosage: EINSALPHA TROPFEN 2 MCG/1 ML (ALFACALCIDOL) 1.2 MCG (12 TROPFEN) IN MUND
     Route: 048
  10. ZITHROMAX [Concomitant]
     Active Substance: AZITHROMYCIN DIHYDRATE
     Dosage: ZITHROMAX PLV 200 MG/5ML FUR SUSP (AZITHROMYCIN) 88 MG 3/WOCHE ORAL; TIME INTERVAL:
     Route: 048
  11. SULFAMETHOXAZOLE\TRIMETHOPRIM [Concomitant]
     Active Substance: SULFAMETHOXAZOLE\TRIMETHOPRIM
     Dosage: NOPIL SIRUP KIND 200/40MG PRO 5 ML (SULFAMETHOXAZOL, TRIMETHOPRIM) 2 ML/TAG ORAL
     Route: 048
  12. MULTILIND [Concomitant]
     Dosage: MULTILIND SUSP M DOSIERPUMPE (NYSTATIN) 1 ML 1-1-1-0 ORAL, VERMUTLICH IM VERLAUF GESTOPPT
     Route: 048
  13. NATRIUM BICARBONAT [Concomitant]
     Dosage: NATRIUM BICARB INF KONZ 8.4 (10 MMOL/10 ML) (NATRIUMHYDROGENCARBONAT) OFF-LABEL ORAL 2 2ML /TAG
     Route: 048
  14. CALCIUMGLUCONAT [Concomitant]
     Dosage: CALCIUMGLUCONAT BRAUN INJ LOS 10  (2.25 MMOL/10 ML) (CALCIUM) ENTERAL UBER SONDE 10 ML 3X/TAG, V
     Route: 048
  15. NEXIUM [Concomitant]
     Active Substance: ESOMEPRAZOLE MAGNESIUM
     Dosage: NEXIUM GRAN 10 MG ZUR ORALEN SUSP (ESOMEPRAZOL) 8 MG 1/TAG ORAL
     Route: 048
  16. OXYBUTYNIN CHLORIDE [Concomitant]
     Active Substance: OXYBUTYNIN CHLORIDE
     Dosage: OXYBUTININ 5 MG (OXYBUTYNIN HYDROCHLORID) ENTERAL UBER SONDE1.25 MG 1X/TAG
     Route: 048
  17. ACETAMINOPHEN [Concomitant]
     Active Substance: ACETAMINOPHEN
     Dosage: BECETAMOL TROPFEN (10 MG = 2 GTT) 100 MG/1 ML (PARACETAMOL) 130 MG IN RESERVE ORAL ; AS NECESSARY
     Route: 048
  18. ATROVENT [Concomitant]
     Active Substance: IPRATROPIUM BROMIDE
     Dosage: ATROVENT INHAL LOS 0.25 MG/2 ML MONODOS (IPRATROPIUM) IN RESERVE INHALATIV ; AS NECESSARY
     Route: 055
  19. PULMICORT TURBUHALER [Concomitant]
     Active Substance: BUDESONIDE
     Dosage: PULMICORT INHAL SUSP 0.25 MG/2ML MONODOS (BUDESONID) IN RESERVE INHALATIV
     Route: 055

REACTIONS (2)
  - Rhabdomyolysis [Recovering/Resolving]
  - Intra-abdominal haemorrhage [Recovering/Resolving]

NARRATIVE: CASE EVENT DATE: 20220428
